FAERS Safety Report 13230658 (Version 1)
Quarter: 2017Q1

REPORT INFORMATION
  Report Type: Spontaneous
  Country: US (occurrence: US)
  Receive Date: 20170214
  Receipt Date: 20170214
  Transmission Date: 20170428
  Serious: No
  Sender: FDA-Public Use
  Company Number: US-BAYER-2017-026161

PATIENT
  Sex: Male
  Weight: 82 kg

DRUGS (5)
  1. BAYER LOW DOSE [Concomitant]
     Active Substance: ASPIRIN
     Route: 048
     Dates: start: 2010, end: 20170208
  2. FINASTERIDE. [Concomitant]
     Active Substance: FINASTERIDE
     Dosage: UNK
  3. MIRALAX [Suspect]
     Active Substance: POLYETHYLENE GLYCOL 3350
     Indication: GASTROINTESTINAL DISORDER
     Dosage: 1-2 DOSES
     Route: 048
     Dates: end: 20170208
  4. ZOCOR [Concomitant]
     Active Substance: SIMVASTATIN
  5. PROSCAR [Concomitant]
     Active Substance: FINASTERIDE
     Dosage: UNK

REACTIONS (3)
  - Product use issue [Unknown]
  - Drug ineffective [Unknown]
  - Product use issue [Unknown]

NARRATIVE: CASE EVENT DATE: 20170207
